FAERS Safety Report 10018716 (Version 1)
Quarter: 2014Q1

REPORT INFORMATION
  Report Type: Spontaneous
  Country: US (occurrence: US)
  Receive Date: 20140318
  Receipt Date: 20140318
  Transmission Date: 20141002
  Serious: No
  Sender: FDA-Public Use
  Company Number: US-PFIZER INC-2014075295

PATIENT
  Age: 44 Year
  Sex: Female

DRUGS (8)
  1. DEPO-PROVERA [Suspect]
     Dosage: UNK
  2. IBUPROFEN [Suspect]
     Dosage: UNK
  3. PHENYTOIN [Suspect]
     Dosage: UNK
  4. ALBUTEROL [Suspect]
     Dosage: UNK
  5. CODEINE [Suspect]
     Dosage: UNK
  6. MONISTAT [Suspect]
     Dosage: UNK
  7. ZANTAC [Suspect]
     Dosage: UNK
  8. REMERON [Suspect]
     Dosage: UNK

REACTIONS (1)
  - Drug hypersensitivity [Unknown]
